FAERS Safety Report 8817374 (Version 2)
Quarter: 2012Q4

REPORT INFORMATION
  Report Type: 
  Country: FR (occurrence: FR)
  Receive Date: 20121004
  Receipt Date: 20121022
  Transmission Date: 20130627
  Serious: Yes (Hospitalization)
  Sender: FDA-Public Use
  Company Number: PHHY2012FR085257

PATIENT
  Sex: Female

DRUGS (9)
  1. ZARZIO [Suspect]
     Dosage: 30 MIU, QD
     Route: 042
     Dates: start: 20120816, end: 20120818
  2. OFLOXACIN [Suspect]
     Dosage: 200 mg, BID
     Route: 042
     Dates: start: 20120815, end: 20120823
  3. CEFTRIAXONE [Suspect]
     Dosage: 2 g, QD
     Route: 042
     Dates: start: 20120815, end: 20120823
  4. HALAVEN [Suspect]
     Indication: BREAST CANCER METASTATIC
     Dosage: 2.25 mg, 1 times per 1 cycle
     Dates: start: 20120803, end: 20120810
  5. KARDEGIC [Concomitant]
     Dosage: 75 mg, QD
     Route: 048
  6. BISOPROLOL [Concomitant]
     Dosage: 10 mg, QD
     Route: 048
  7. CAPTEA [Concomitant]
     Dosage: 1 DF, QD
     Route: 048
  8. VIRLIX [Concomitant]
     Dosage: 10 mg, QD
     Route: 048
  9. CLARITYNE [Concomitant]
     Dosage: 10 mg, QD
     Route: 048

REACTIONS (6)
  - Renal failure acute [Recovered/Resolved]
  - Oedema peripheral [Recovered/Resolved]
  - Oliguria [Recovered/Resolved]
  - Anuria [Recovered/Resolved]
  - Fluid overload [Recovered/Resolved]
  - Weight increased [Recovered/Resolved]
